FAERS Safety Report 5131610-4 (Version None)
Quarter: 2006Q4

REPORT INFORMATION
  Report Type: 
  Country: None (occurrence: None)
  Receive Date: 20061016
  Receipt Date: 20061010
  Transmission Date: 20070319
  Serious: Yes (Death)
  Sender: FDA-Public Use
  Company Number: 112050ISR

PATIENT
  Sex: Male

DRUGS (6)
  1. CLOMIPRAMINE HCL [Suspect]
     Indication: DEPRESSION
     Dosage: ORAL
     Route: 048
  2. QUETIAPINE [Suspect]
     Indication: DEPRESSION
     Dosage: ORAL
     Route: 048
  3. ARTHROTEC [Concomitant]
  4. LANSOPRAZOLE [Concomitant]
  5. MEBEVERINE [Concomitant]
  6. ZOLPIDEM TARTRATE [Concomitant]

REACTIONS (3)
  - INTESTINAL OBSTRUCTION [None]
  - MULTI-ORGAN FAILURE [None]
  - POST PROCEDURAL COMPLICATION [None]
